FAERS Safety Report 5263576-0 (Version None)
Quarter: 2007Q1

REPORT INFORMATION
  Report Type: 
  Country: None (occurrence: None)
  Receive Date: 20061213
  Receipt Date: 20031014
  Transmission Date: 20070707
  Serious: Yes (Death)
  Sender: FDA-Public Use
  Company Number: 2003UW09389

PATIENT
  Age: 73 Year
  Sex: Male
  Weight: 72.5755 kg

DRUGS (7)
  1. IRESSA [Suspect]
     Indication: NON-SMALL CELL LUNG CANCER
     Dosage: 250 MG QD PO
     Route: 048
     Dates: start: 20030627, end: 20030703
  2. ACCUPRIL [Concomitant]
  3. OXYCONTIN [Concomitant]
  4. AVELOX [Concomitant]
  5. AMITRIPTILINE [Concomitant]
  6. GLUCOVANCE [Concomitant]
  7. LIPITOR [Concomitant]

REACTIONS (2)
  - DISEASE PROGRESSION [None]
  - LUNG INFILTRATION [None]
